FAERS Safety Report 5157343-6 (Version None)
Quarter: 2006Q4

REPORT INFORMATION
  Report Type: 
  Country: None (occurrence: None)
  Receive Date: 20061127
  Receipt Date: 20061115
  Transmission Date: 20070319
  Serious: Yes (Other)
  Sender: FDA-Public Use
  Company Number: HR-NOVOPROD-258726

PATIENT
  Age: 56 Year
  Sex: Male
  Weight: 94 kg

DRUGS (5)
  1. LEVEMIR [Suspect]
     Indication: DIABETES MELLITUS
     Dosage: 50 IE, UNK
     Dates: start: 20061008, end: 20061103
  2. HUMALOG [Concomitant]
     Dosage: 60 IE, UNK
     Route: 058
     Dates: start: 20000501
  3. TRIATEC [Concomitant]
     Indication: PROPHYLAXIS
     Route: 048
     Dates: start: 20020101
  4. SIMVASTATIN [Concomitant]
     Indication: DYSLIPIDAEMIA
     Route: 048
     Dates: start: 20040101
  5. VOLTAREN                           /00372301/ [Concomitant]
     Route: 048

REACTIONS (3)
  - BLOOD GLUCOSE INCREASED [None]
  - VERTIGO [None]
  - VOMITING [None]
